FAERS Safety Report 23233237 (Version 1)
Quarter: 2023Q4

REPORT INFORMATION
  Report Type: Spontaneous
  Country: GB (occurrence: GB)
  Receive Date: 20231128
  Receipt Date: 20231128
  Transmission Date: 20240109
  Serious: Yes (Other)
  Sender: FDA-Public Use
  Company Number: None

PATIENT
  Age: 80 Year
  Sex: Female
  Weight: 44 kg

DRUGS (14)
  1. AMOXICILLIN [Suspect]
     Active Substance: AMOXICILLIN
     Indication: Product used for unknown indication
     Dosage: 500 MG
     Route: 065
     Dates: start: 20231118
  2. Adcal [Concomitant]
     Indication: Product used for unknown indication
     Dosage: LUNCHTIME AND TEATIME
     Route: 065
     Dates: start: 20230622
  3. AMOXICILLIN [Concomitant]
     Active Substance: AMOXICILLIN
     Indication: Product used for unknown indication
     Dosage: SPOON
     Route: 065
     Dates: start: 20231117
  4. BUPRENORPHINE [Concomitant]
     Active Substance: BUPRENORPHINE
     Indication: Product used for unknown indication
     Dosage: APPLY
     Route: 061
     Dates: start: 20230622
  5. CLARITHROMYCIN [Concomitant]
     Active Substance: CLARITHROMYCIN
     Indication: Product used for unknown indication
     Dosage: SPOON
     Route: 065
     Dates: start: 20231118
  6. DOMPERIDONE [Concomitant]
     Active Substance: DOMPERIDONE
     Indication: Product used for unknown indication
     Route: 065
     Dates: start: 20231118
  7. LACTULOSE [Concomitant]
     Active Substance: LACTULOSE
     Indication: Product used for unknown indication
     Dosage: 10 ML, BID
     Route: 065
     Dates: start: 20230721
  8. LEVOTHYROXINE [Concomitant]
     Active Substance: LEVOTHYROXINE
     Indication: Product used for unknown indication
     Dosage: EACH MORNING
     Route: 065
     Dates: start: 20210308
  9. BENSERAZIDE HYDROCHLORIDE\LEVODOPA [Concomitant]
     Active Substance: BENSERAZIDE HYDROCHLORIDE\LEVODOPA
     Indication: Product used for unknown indication
     Dosage: 2 DF BID
     Route: 065
     Dates: start: 20230622
  10. NYSTATIN [Concomitant]
     Active Substance: NYSTATIN
     Indication: Product used for unknown indication
     Dosage: 1 ML, QID
     Route: 065
     Dates: start: 20231117
  11. ACETAMINOPHEN [Concomitant]
     Active Substance: ACETAMINOPHEN
     Indication: Product used for unknown indication
     Dosage: ADULT DOSE:  TAKE 20MLS (ONE GRAM)  UP TO FOUR...
     Route: 065
     Dates: start: 20221013
  12. ROTIGOTINE [Concomitant]
     Active Substance: ROTIGOTINE
     Indication: Product used for unknown indication
     Dosage: APPLY AT NIGHT--
     Route: 061
     Dates: start: 20210113
  13. SODIUM PICOSULFATE [Concomitant]
     Active Substance: SODIUM PICOSULFATE
     Indication: Product used for unknown indication
     Dosage: TAKE ONE OR TWO 5ML SPOONFULS AT NIGHT PRN  FOR...
     Route: 065
     Dates: start: 20230720
  14. Zerobase [Concomitant]
     Indication: Product used for unknown indication
     Dosage: USE  TWICE  A DAY AND AS NEEDED  TO KEEP SKIN...
     Route: 065
     Dates: start: 20210128

REACTIONS (2)
  - Vomiting [Recovering/Resolving]
  - Abdominal discomfort [Unknown]

NARRATIVE: CASE EVENT DATE: 20231118
